FAERS Safety Report 8854115 (Version 1)
Quarter: 2012Q4

REPORT INFORMATION
  Report Type: Report from Study
  Country: US (occurrence: US)
  Receive Date: 20121022
  Receipt Date: 20121022
  Transmission Date: 20130627
  Serious: Yes (Other)
  Sender: FDA-Public Use
  Company Number: US-ASTELLAS-2012US010297

PATIENT

DRUGS (4)
  1. ERLOTINIB TABLET [Suspect]
     Indication: NON-SMALL CELL LUNG CANCER
     Dosage: 100 mg, UID/QD
     Route: 048
  2. ERLOTINIB TABLET [Suspect]
     Dosage: 150 mg, UID/QD
     Route: 048
  3. EVEROLIMUS [Suspect]
     Indication: NON-SMALL CELL LUNG CANCER
     Dosage: 2.5 mg, UID/QD
     Route: 048
  4. EVEROLIMUS [Suspect]
     Dosage: 5 mg, UID/QD
     Route: 048

REACTIONS (2)
  - Incorrect dose administered [Unknown]
  - Palmar-plantar erythrodysaesthesia syndrome [Unknown]
